FAERS Safety Report 14673802 (Version 1)
Quarter: 2018Q1

REPORT INFORMATION
  Report Type: Spontaneous
  Country: US (occurrence: US)
  Receive Date: 20180322
  Receipt Date: 20180322
  Transmission Date: 20180509
  Serious: No
  Sender: FDA-Public Use
  Company Number: None

PATIENT
  Age: 69 Year
  Sex: Male

DRUGS (1)
  1. INDOMETHACINE [Suspect]
     Active Substance: INDOMETHACIN
     Indication: PAIN
     Route: 048
     Dates: start: 20180220, end: 20180302

REACTIONS (4)
  - Abdominal pain upper [None]
  - Muscle spasms [None]
  - Diarrhoea [None]
  - Product substitution issue [None]

NARRATIVE: CASE EVENT DATE: 20180220
